FAERS Safety Report 4879684-X (Version None)
Quarter: 2006Q1

REPORT INFORMATION
  Report Type: 
  Country: None (occurrence: None)
  Receive Date: 20060113
  Receipt Date: 20060104
  Transmission Date: 20060701
  Serious: Yes (Hospitalization, Other)
  Sender: FDA-Public Use
  Company Number: PHEH2006US00538

PATIENT
  Age: 39 Year
  Sex: Female

DRUGS (15)
  1. FOSAMAX ONCE WEEKLY [Concomitant]
     Dosage: UNK, QW
  2. PROCARDIA XL [Concomitant]
     Dosage: 60 MG, QD
  3. NEXIUM [Concomitant]
     Dosage: 40 MG, QID
     Route: 048
  4. LIPITOR [Concomitant]
     Dosage: 10 MG, QD
     Route: 048
  5. COLCHICINE [Concomitant]
     Dosage: 0.6 MG, PRN
     Route: 048
  6. NOVOLOG [Concomitant]
     Dosage: 8 IU, TID
  7. NPH INSULIN [Concomitant]
     Indication: DIABETES MELLITUS
     Dosage: 8 IU, BID
     Route: 058
  8. CELLCEPT [Concomitant]
     Indication: RENAL TRANSPLANT
     Dosage: 500 MG, BID
     Dates: start: 19990101
  9. PREDNISONE [Concomitant]
     Indication: RENAL TRANSPLANT
     Dosage: 10 MG, QD
     Route: 048
     Dates: start: 19990101
  10. LOPRESSOR [Concomitant]
     Dosage: 100 MG, BID
  11. FEOSOL [Concomitant]
     Dosage: 225 MG, TID
  12. LASIX [Concomitant]
     Dosage: 80 MG, PRN
     Dates: start: 20051020
  13. PROCRIT [Concomitant]
  14. NEORAL [Suspect]
     Indication: RENAL TRANSPLANT
     Dosage: 125 MG AM + 100 MG PM
     Route: 048
     Dates: start: 19990101, end: 20060102
  15. NEORAL [Suspect]
     Dosage: 100 MG AM + 75 MG PM
     Route: 048
     Dates: start: 20060103

REACTIONS (10)
  - BLOOD CREATININE INCREASED [None]
  - COMPLICATIONS OF TRANSPLANTED KIDNEY [None]
  - COMPUTERISED TOMOGRAM ABNORMAL [None]
  - DIABETES MELLITUS INADEQUATE CONTROL [None]
  - DISCOMFORT [None]
  - DRUG LEVEL INCREASED [None]
  - KIDNEY TRANSPLANT REJECTION [None]
  - PERIRENAL HAEMATOMA [None]
  - URETERIC DIVERSION OPERATION [None]
  - URINARY TRACT INFECTION [None]
